FAERS Safety Report 6369914-X (Version None)
Quarter: 2009Q3

REPORT INFORMATION
  Report Type: 
  Country: None (occurrence: None)
  Receive Date: 20090923
  Receipt Date: 20071220
  Transmission Date: 20100115
  Serious: Yes (Hospitalization)
  Sender: FDA-Public Use
  Company Number: US-ASTRAZENECA-2006UW10737

PATIENT
  Age: 18404 Day
  Sex: Female
  Weight: 67.1 kg

DRUGS (11)
  1. SEROQUEL [Suspect]
     Route: 048
     Dates: start: 20041101, end: 20051001
  2. SEROQUEL [Suspect]
     Route: 048
     Dates: start: 20050120
  3. NORVASC [Concomitant]
     Route: 048
     Dates: start: 20050815
  4. KLONOPIN [Concomitant]
     Route: 048
     Dates: start: 20040912
  5. RISPERDAL [Concomitant]
     Dosage: 1 MG AT MORNING AND 0.5 MG AT NIGHT
     Route: 048
     Dates: start: 20050815
  6. LIPITOR [Concomitant]
     Route: 048
     Dates: start: 20040529
  7. SYNTHROID [Concomitant]
     Route: 048
     Dates: start: 20050809
  8. EFFEXOR [Concomitant]
     Route: 048
     Dates: start: 20050815
  9. GLUCOPHAGE [Concomitant]
     Route: 048
     Dates: start: 20050505
  10. REGLAN [Concomitant]
     Dosage: 30-40 MG
     Route: 048
     Dates: start: 20040329
  11. LOPID [Concomitant]
     Route: 048
     Dates: start: 20040302

REACTIONS (3)
  - DIABETES MELLITUS [None]
  - HYPERGLYCAEMIA [None]
  - TYPE 1 DIABETES MELLITUS [None]
